FAERS Safety Report 14772551 (Version 1)
Quarter: 2018Q2

REPORT INFORMATION
  Report Type: Spontaneous
  Country: IE (occurrence: IE)
  Receive Date: 20180418
  Receipt Date: 20180418
  Transmission Date: 20180711
  Serious: Yes (Other)
  Sender: FDA-Public Use
  Company Number: IE-ACCORD-065737

PATIENT
  Age: 55 Year

DRUGS (2)
  1. LETROZOLE. [Suspect]
     Active Substance: LETROZOLE
     Indication: RENAL CELL CARCINOMA
  2. SUNITINIB [Suspect]
     Active Substance: SUNITINIB
     Indication: INTRADUCTAL PROLIFERATIVE BREAST LESION
     Dosage: 37.5 MG, ALSO RECEIVED 50 MG

REACTIONS (3)
  - Thrombocytopenia [Unknown]
  - Hypothyroidism [Unknown]
  - Oral pain [Recovering/Resolving]
